FAERS Safety Report 24578266 (Version 1)
Quarter: 2024Q4

REPORT INFORMATION
  Report Type: Report from Study
  Country: US (occurrence: US)
  Receive Date: 20241105
  Receipt Date: 20241105
  Transmission Date: 20250114
  Serious: Yes (Hospitalization, Other)
  Sender: ALEXION PHARMACEUTICALS
  Company Number: US-AstraZeneca-CH-00726136A

PATIENT
  Age: 82 Year

DRUGS (4)
  1. OLAPARIB [Suspect]
     Active Substance: OLAPARIB
     Indication: Product used for unknown indication
     Dosage: UNK
  2. OLAPARIB [Suspect]
     Active Substance: OLAPARIB
     Dosage: UNK
  3. OLAPARIB [Suspect]
     Active Substance: OLAPARIB
     Dosage: UNK
  4. OLAPARIB [Suspect]
     Active Substance: OLAPARIB
     Dosage: UNK

REACTIONS (3)
  - Product use issue [Unknown]
  - Hip fracture [Unknown]
  - Rehabilitation therapy [Unknown]
